FAERS Safety Report 21663027 (Version 1)
Quarter: 2022Q4

REPORT INFORMATION
  Report Type: Report from Study
  Country: US (occurrence: US)
  Receive Date: 20221130
  Receipt Date: 20221130
  Transmission Date: 20230113
  Serious: Yes (Other)
  Sender: FDA-Public Use
  Company Number: US-GILEAD-2022-0606890

PATIENT
  Age: 59 Year
  Sex: Male

DRUGS (1)
  1. AMBRISENTAN [Suspect]
     Active Substance: AMBRISENTAN
     Indication: Pulmonary arterial hypertension
     Dosage: 10 MG, QD
     Route: 065
     Dates: start: 202006

REACTIONS (5)
  - Syncope [Unknown]
  - Sciatic nerve injury [Unknown]
  - Tinnitus [Not Recovered/Not Resolved]
  - Asthenia [Unknown]
  - Pain [Unknown]
